FAERS Safety Report 4341117-X (Version None)
Quarter: 2004Q2

REPORT INFORMATION
  Report Type: 
  Country: None (occurrence: None)
  Receive Date: 20040413
  Receipt Date: 20040407
  Transmission Date: 20050107
  Serious: Yes (Other)
  Sender: FDA-Public Use
  Company Number: NSADSS2001032719

PATIENT
  Age: 67 Year
  Sex: Male

DRUGS (6)
  1. REMICADE [Suspect]
     Indication: RHEUMATOID ARTHRITIS
     Dosage: INTRAVENOUS DRIP
     Route: 041
     Dates: start: 20000501, end: 20010501
  2. SANDIMMUNE [Suspect]
     Indication: RHEUMATOID ARTHRITIS
     Dosage: 200 MG, 1 IN 1 DAY, ORAL
     Route: 048
     Dates: start: 19980501
  3. DELTACORTENE (PREDNISONE) TABLETS [Suspect]
     Indication: RHEUMATOID ARTHRITIS
     Dosage: 5 MG, 1 IN 1 DAY, ORAL
     Route: 048
     Dates: start: 19990701
  4. INDOMETHACIN [Concomitant]
  5. GLYBURIDE [Concomitant]
  6. CYTOTEC [Concomitant]

REACTIONS (2)
  - DISSEMINATED TUBERCULOSIS [None]
  - MYCOBACTERIUM AVIUM COMPLEX INFECTION [None]
